FAERS Safety Report 9048917 (Version 2)
Quarter: 2013Q1

REPORT INFORMATION
  Report Type: Spontaneous
  Country: US (occurrence: None)
  Receive Date: 20130116
  Receipt Date: 20130131
  Transmission Date: 20140127
  Serious: Yes (Hospitalization)
  Sender: FDA-Public Use
  Company Number: DKLU1087846

PATIENT
  Age: 19 Month
  Sex: Female
  Weight: 11.6 kg

DRUGS (4)
  1. SABRIL [Suspect]
     Indication: INFANTILE SPASMS
     Dates: start: 20111004
  2. KEPPRA [Suspect]
     Indication: PRODUCT USED FOR UNKNOWN INDICATION
     Dates: start: 2012
  3. PYRIDOXINE HCL (PYRIDOXINE HYDROCHLORIDE) [Concomitant]
  4. DIASTAT ACUDIAL (DIAZEPAM) [Concomitant]

REACTIONS (9)
  - Petit mal epilepsy [None]
  - Irritability [None]
  - Aggression [None]
  - Feeling abnormal [None]
  - Anger [None]
  - Staring [None]
  - Mood swings [None]
  - Muscle twitching [None]
  - Skin hypopigmentation [None]
